FAERS Safety Report 5825626-X (Version None)
Quarter: 2008Q3

REPORT INFORMATION
  Report Type: 
  Country: None (occurrence: None)
  Receive Date: 20080729
  Receipt Date: 20080718
  Transmission Date: 20090109
  Serious: Yes (Life-Threatening)
  Sender: FDA-Public Use
  Company Number: B0529863A

PATIENT
  Age: 69 Year
  Sex: Male

DRUGS (6)
  1. SERETIDE [Suspect]
     Indication: DRUG USE FOR UNKNOWN INDICATION
     Dosage: 2PUFF TWICE PER DAY
     Route: 055
     Dates: start: 20080412
  2. VALSARTAN AND HYDROCHLOROTHIAZIDE [Suspect]
     Indication: DRUG USE FOR UNKNOWN INDICATION
     Route: 048
  3. KALEORID [Suspect]
     Indication: DRUG USE FOR UNKNOWN INDICATION
     Route: 048
  4. CALCIPARINE [Concomitant]
     Indication: PROPHYLAXIS
     Dosage: .8ML TWICE PER DAY
     Route: 058
     Dates: start: 20080408, end: 20080424
  5. TAHOR [Concomitant]
     Dosage: 80MG PER DAY
     Route: 048
  6. SPIRIVA [Concomitant]
     Dosage: 1TAB PER DAY
     Route: 048

REACTIONS (7)
  - ASTHENIA [None]
  - HYPERKALAEMIA [None]
  - INJECTION SITE ERYTHEMA [None]
  - PRURITUS [None]
  - RENAL FAILURE [None]
  - SHOCK [None]
  - URTICARIA [None]
